FAERS Safety Report 16778297 (Version 2)
Quarter: 2020Q2

REPORT INFORMATION
  Report Type: Spontaneous
  Country: US (occurrence: US)
  Receive Date: 20190905
  Receipt Date: 20200506
  Transmission Date: 20200713
  Serious: No
  Sender: FDA-Public Use
  Company Number: US-GLAXOSMITHKLINE-US2019AMR161024

PATIENT
  Sex: Female

DRUGS (2)
  1. FLONASE ALLERGY RELIEF [Suspect]
     Active Substance: FLUTICASONE PROPIONATE
     Indication: HYPERSENSITIVITY
     Dosage: UNK
  2. IBRANCE [Interacting]
     Active Substance: PALBOCICLIB
     Indication: PRODUCT USED FOR UNKNOWN INDICATION
     Dosage: UNK

REACTIONS (5)
  - Drug interaction [Unknown]
  - Adverse drug reaction [Unknown]
  - Palpitations [Recovered/Resolved]
  - Hypotension [Unknown]
  - Drug ineffective [Unknown]
